FAERS Safety Report 10414223 (Version 2)
Quarter: 2014Q3

REPORT INFORMATION
  Report Type: Spontaneous
  Country: ZA (occurrence: ZA)
  Receive Date: 20140827
  Receipt Date: 20140901
  Transmission Date: 20150326
  Serious: Yes (Other)
  Sender: FDA-Public Use
  Company Number: ZA-009507513-1408ZAF014376

PATIENT
  Age: 35 Year
  Sex: Female

DRUGS (1)
  1. INTRON A [Suspect]
     Active Substance: INTERFERON ALFA-2B
     Indication: BASOSQUAMOUS CARCINOMA
     Dosage: 1.1-1.2 MIU PER DOSE, 3 TIMES A WEEK FOR 3 WEEKS
     Route: 026

REACTIONS (3)
  - Fatigue [Unknown]
  - Drug ineffective [Unknown]
  - Basosquamous carcinoma [Unknown]
